FAERS Safety Report 7709542-4 (Version None)
Quarter: 2011Q3

REPORT INFORMATION
  Report Type: 
  Country: None (occurrence: None)
  Receive Date: 20110825
  Receipt Date: 20110816
  Transmission Date: 20111222
  Serious: Yes (Hospitalization, Other)
  Sender: FDA-Public Use
  Company Number: US-AMGEN-USASP2011041690

PATIENT
  Age: 41 Year
  Sex: Female

DRUGS (1)
  1. ENBREL [Suspect]
     Indication: RHEUMATOID ARTHRITIS
     Dosage: 50 MG, QWK
     Dates: start: 20100726

REACTIONS (8)
  - RHEUMATOID ARTHRITIS [None]
  - URINARY TRACT INFECTION [None]
  - VOMITING [None]
  - ABDOMINAL PAIN UPPER [None]
  - ABDOMINAL PAIN [None]
  - CHOLELITHIASIS [None]
  - BLOOD POTASSIUM DECREASED [None]
  - KIDNEY INFECTION [None]
